FAERS Safety Report 9501461 (Version 2)
Quarter: 2014Q4

REPORT INFORMATION
  Report Type: Spontaneous
  Country: AU (occurrence: AU)
  Receive Date: 20130905
  Receipt Date: 20141028
  Transmission Date: 20150529
  Serious: Yes (Hospitalization, Other)
  Sender: FDA-Public Use
  Company Number: AU-GLAXOSMITHKLINE-B0919528A

PATIENT
  Sex: Male

DRUGS (1)
  1. DUODART [Suspect]
     Active Substance: DUTASTERIDE\TAMSULOSIN
     Indication: PRODUCT USED FOR UNKNOWN INDICATION
     Dosage: 500 UG/400UG
     Route: 065
     Dates: start: 20130611

REACTIONS (10)
  - Cognitive disorder [Unknown]
  - Delirium [Unknown]
  - Muscle atrophy [Unknown]
  - Musculoskeletal disorder [Unknown]
  - Dysphagia [Unknown]
  - Head injury [Unknown]
  - Fall [Unknown]
  - Dizziness [Unknown]
  - Judgement impaired [Unknown]
  - Gait disturbance [Unknown]
